FAERS Safety Report 22184940 (Version 1)
Quarter: 2023Q2

REPORT INFORMATION
  Report Type: Spontaneous
  Country: US (occurrence: US)
  Receive Date: 20230407
  Receipt Date: 20230407
  Transmission Date: 20230721
  Serious: Yes (Other)
  Sender: FDA-Public Use
  Company Number: US-MLMSERVICE-20230317-4173528-1

PATIENT

DRUGS (17)
  1. PREDNISOLONE [Suspect]
     Active Substance: PREDNISOLONE
     Indication: Still^s disease
     Dosage: 2 MG/KG, QD
     Route: 048
     Dates: start: 201712, end: 201806
  2. PREDNISOLONE [Suspect]
     Active Substance: PREDNISOLONE
     Indication: Haemophagocytic lymphohistiocytosis
     Dosage: UNK, GRADUALLY WEANED
     Route: 048
     Dates: start: 201806, end: 201901
  3. PREDNISOLONE [Suspect]
     Active Substance: PREDNISOLONE
     Indication: Cytomegalovirus infection
     Dosage: 2 MG/KG, QD
     Route: 048
     Dates: start: 201901
  4. PREDNISOLONE [Suspect]
     Active Substance: PREDNISOLONE
     Dosage: UNK, ANOTHER ATTEMPT TO WEAN
     Route: 048
     Dates: start: 201901, end: 201901
  5. PREDNISOLONE [Suspect]
     Active Substance: PREDNISOLONE
     Dosage: UNK, TAPER OFF CORTICOSTERIODS
  6. METHYLPREDNISOLONE [Suspect]
     Active Substance: METHYLPREDNISOLONE
     Indication: Cytomegalovirus infection
     Dosage: 30 MG/KG
     Route: 042
     Dates: start: 201712, end: 2017
  7. METHYLPREDNISOLONE [Suspect]
     Active Substance: METHYLPREDNISOLONE
     Indication: Haemophagocytic lymphohistiocytosis
     Dosage: UNK, PULSE DOSE
     Dates: start: 2018
  8. METHYLPREDNISOLONE [Suspect]
     Active Substance: METHYLPREDNISOLONE
     Indication: Still^s disease
     Dosage: UNK, PULSE DOSE
     Dates: start: 201901
  9. METHYLPREDNISOLONE [Suspect]
     Active Substance: METHYLPREDNISOLONE
     Dosage: UNK
     Dates: start: 202101
  10. ANAKINRA [Concomitant]
     Active Substance: ANAKINRA
     Indication: Still^s disease
     Dosage: 2 MG/KG, QD
     Dates: start: 201806, end: 201806
  11. ANAKINRA [Concomitant]
     Active Substance: ANAKINRA
     Indication: Haemophagocytic lymphohistiocytosis
     Dosage: 3 MG/KG, QD
     Dates: start: 201806, end: 201901
  12. ANAKINRA [Concomitant]
     Active Substance: ANAKINRA
     Dosage: 4 MG/KG, QD
     Dates: start: 201901
  13. METHOTREXATE [Concomitant]
     Active Substance: METHOTREXATE
     Indication: Still^s disease
     Dosage: 10 MG, WEEKLY
     Route: 058
     Dates: start: 201901
  14. METHOTREXATE [Concomitant]
     Active Substance: METHOTREXATE
     Indication: Haemophagocytic lymphohistiocytosis
  15. CANAKINUMAB [Concomitant]
     Active Substance: CANAKINUMAB
     Dosage: 4 MG/KG, EVERY 4 WEEKS
     Dates: start: 202001
  16. EMAPALUMAB [Concomitant]
     Active Substance: EMAPALUMAB
     Indication: Still^s disease
     Dosage: 6 MG/KG, QD
  17. EMAPALUMAB [Concomitant]
     Active Substance: EMAPALUMAB
     Dosage: 3 MG/KG (TWICE WEEKLY DOSE) FOR 6 DOSES

REACTIONS (6)
  - Joint dislocation [Unknown]
  - Spinal fracture [Unknown]
  - Cataract [Unknown]
  - Cushingoid [Unknown]
  - Osteopenia [Unknown]
  - Weight increased [Unknown]
